FAERS Safety Report 5149520-5 (Version None)
Quarter: 2006Q4

REPORT INFORMATION
  Report Type: 
  Country: None (occurrence: None)
  Receive Date: 20061113
  Receipt Date: 20060309
  Transmission Date: 20070319
  Serious: No
  Sender: FDA-Public Use
  Company Number: US-GLAXOSMITHKLINE-A0596933A

PATIENT
  Age: 56 Year
  Sex: Female

DRUGS (7)
  1. COREG [Suspect]
     Indication: DRUG USE FOR UNKNOWN INDICATION
     Dosage: 6.25MG PER DAY
     Route: 048
     Dates: start: 20060128
  2. VASOTEC [Concomitant]
  3. DEPAKOTE [Concomitant]
  4. LIPITOR [Concomitant]
  5. ABILIFY [Concomitant]
  6. GLYBURIDE [Concomitant]
  7. ANTIBIOTIC [Concomitant]

REACTIONS (3)
  - DIZZINESS [None]
  - PRURITUS [None]
  - RASH [None]
